FAERS Safety Report 7402769-0 (Version None)
Quarter: 2011Q2

REPORT INFORMATION
  Report Type: 
  Country: None (occurrence: None)
  Receive Date: 20110408
  Receipt Date: 20110328
  Transmission Date: 20111010
  Serious: Yes (Hospitalization, Other)
  Sender: FDA-Public Use
  Company Number: PHHY2010CA38071

PATIENT
  Sex: Female

DRUGS (1)
  1. ZOMETA [Suspect]
     Indication: BREAST CANCER METASTATIC
     Dosage: 3 MG, EVERY 4 WEEKS
     Route: 042
     Dates: start: 20100517

REACTIONS (6)
  - OEDEMA [None]
  - BLOOD PRESSURE DECREASED [None]
  - BLOOD ALKALINE PHOSPHATASE INCREASED [None]
  - ANION GAP DECREASED [None]
  - DEHYDRATION [None]
  - INTESTINAL OBSTRUCTION [None]
